FAERS Safety Report 12453433 (Version 1)
Quarter: 2016Q2

REPORT INFORMATION
  Report Type: Spontaneous
  Country: US (occurrence: US)
  Receive Date: 20160609
  Receipt Date: 20160609
  Transmission Date: 20160815
  Serious: Yes (Other)
  Sender: FDA-Public Use
  Company Number: GXBR2016US002028

PATIENT
  Age: 62 Year
  Sex: Female
  Weight: 90.7 kg

DRUGS (9)
  1. PRAVASTATIN [Suspect]
     Active Substance: PRAVASTATIN\PRAVASTATIN SODIUM
     Indication: BLOOD CHOLESTEROL INCREASED
     Dosage: UNK DF, UNK
     Route: 065
  2. HYDROCHLOROTHIAZIDE. [Concomitant]
     Active Substance: HYDROCHLOROTHIAZIDE
     Indication: HYPERTENSION
     Dosage: 25 MG, QD
     Route: 048
  3. VITAMIN D3 [Concomitant]
     Active Substance: CHOLECALCIFEROL
     Indication: PRODUCT USED FOR UNKNOWN INDICATION
     Dosage: 1000 IU, QD
     Route: 048
  4. FISH OIL [Concomitant]
     Active Substance: FISH OIL
     Indication: PRODUCT USED FOR UNKNOWN INDICATION
     Dosage: 1000 MG, QD
     Route: 048
  5. ASPIRIN 81 [Concomitant]
     Active Substance: ASPIRIN
     Indication: PRODUCT USED FOR UNKNOWN INDICATION
     Dosage: 81 MG, QD
     Route: 048
  6. CYANOCOBALAMIN. [Concomitant]
     Active Substance: CYANOCOBALAMIN
     Indication: PRODUCT USED FOR UNKNOWN INDICATION
     Dosage: 1000 UG, QD
     Route: 048
  7. PROAIR HFA [Concomitant]
     Active Substance: ALBUTEROL SULFATE
     Indication: PRODUCT USED FOR UNKNOWN INDICATION
     Dosage: UNK DF, UNK
     Route: 055
  8. FOLIC ACID. [Concomitant]
     Active Substance: FOLIC ACID
     Indication: PRODUCT USED FOR UNKNOWN INDICATION
     Dosage: UNK DF, QD
     Route: 048
  9. ATORVASTATIN CALCIUM. [Suspect]
     Active Substance: ATORVASTATIN CALCIUM
     Indication: BLOOD CHOLESTEROL INCREASED
     Dosage: 20 MG, QD
     Route: 048
     Dates: start: 201404, end: 201405

REACTIONS (30)
  - Polymyositis [Not Recovered/Not Resolved]
  - Gait disturbance [Unknown]
  - Pain [Unknown]
  - Weight decreased [Unknown]
  - Dyspepsia [Unknown]
  - Asthenia [Unknown]
  - Abdominal discomfort [Not Recovered/Not Resolved]
  - Cough [Unknown]
  - Heart rate irregular [Unknown]
  - Dyspnoea [Unknown]
  - Fatigue [Unknown]
  - Dysphagia [Unknown]
  - Activities of daily living impaired [Unknown]
  - Anal incontinence [Unknown]
  - Choking [Unknown]
  - Vision blurred [Unknown]
  - Muscle strain [Unknown]
  - Sleep apnoea syndrome [Unknown]
  - Muscle atrophy [Unknown]
  - Arthralgia [Unknown]
  - Aphasia [Unknown]
  - Hyporeflexia [Unknown]
  - Feeling abnormal [Unknown]
  - Dysstasia [Unknown]
  - Immune system disorder [Unknown]
  - Burning sensation [Unknown]
  - Posture abnormal [Unknown]
  - Blood creatine phosphokinase increased [Recovering/Resolving]
  - Diplopia [Unknown]
  - Arthritis [Unknown]

NARRATIVE: CASE EVENT DATE: 201405
